FAERS Safety Report 11160698 (Version 1)
Quarter: 2015Q2

REPORT INFORMATION
  Report Type: Spontaneous
  Country: US (occurrence: US)
  Receive Date: 20150604
  Receipt Date: 20150604
  Transmission Date: 20150821
  Serious: No
  Sender: FDA-Public Use
  Company Number: US-SA-2014SA067035

PATIENT
  Age: 50 Year
  Sex: Female

DRUGS (2)
  1. SOLOSTAR [Suspect]
     Active Substance: DEVICE
     Indication: TYPE 1 DIABETES MELLITUS
     Dates: start: 2011
  2. LANTUS SOLOSTAR [Suspect]
     Active Substance: INSULIN GLARGINE
     Indication: TYPE 1 DIABETES MELLITUS
     Dosage: 50/50 (UNITS NOT SPECIFIED)
     Route: 058
     Dates: start: 2011

REACTIONS (2)
  - Blood glucose increased [Unknown]
  - Drug administration error [Unknown]

NARRATIVE: CASE EVENT DATE: 2011
